FAERS Safety Report 7907641-5 (Version None)
Quarter: 2011Q4

REPORT INFORMATION
  Report Type: 
  Country: None (occurrence: None)
  Receive Date: 20111110
  Receipt Date: 20110923
  Transmission Date: 20120403
  Serious: Yes (Hospitalization, Other)
  Sender: FDA-Public Use
  Company Number: US-ASTRAZENECA-2011SE28194

PATIENT
  Age: 46 Year
  Sex: Male
  Weight: 88.9 kg

DRUGS (23)
  1. SEROQUEL [Suspect]
     Dosage: 300 MGS TWO TIMES A DAY AND AT BEDTIME
     Route: 048
  2. SEROQUEL [Suspect]
     Route: 048
     Dates: start: 20110501
  3. PLAVIX [Concomitant]
  4. LIPITOR [Concomitant]
  5. SEROQUEL [Suspect]
     Dosage: 300 MG ONE OR TWO TIMES A DAY
     Route: 048
  6. SEROQUEL [Suspect]
     Route: 048
  7. VALIUM [Concomitant]
  8. SEROQUEL [Suspect]
     Route: 048
     Dates: start: 20110501
  9. SEROQUEL [Suspect]
     Dosage: 300 MGS TWO TIMES A DAY AND AT BEDTIME
     Route: 048
  10. SEROQUEL [Suspect]
     Dosage: 300 MGS TWO TIMES A DAY AND AT BEDTIME
     Route: 048
  11. NEURONTIN [Concomitant]
  12. SEROQUEL [Suspect]
     Route: 048
     Dates: start: 20080101
  13. LOPRESSOR [Concomitant]
  14. PERCOCET [Concomitant]
  15. SEROQUEL [Suspect]
     Dosage: 300 MG ONE OR TWO TIMES A DAY
     Route: 048
  16. SEROQUEL [Suspect]
     Indication: SLEEP DISORDER
     Route: 048
     Dates: start: 20080101
  17. SEROQUEL [Suspect]
     Route: 048
     Dates: start: 20080101
  18. SEROQUEL [Suspect]
     Route: 048
  19. XANAX [Concomitant]
  20. ASPIRIN [Concomitant]
  21. SEROQUEL [Suspect]
     Indication: BIPOLAR DISORDER
     Route: 048
     Dates: start: 20080101
  22. SEROQUEL [Suspect]
     Dosage: 300 MGS TWO TIMES A DAY AND AT BEDTIME
     Route: 048
  23. LISINOPRIL [Concomitant]

REACTIONS (9)
  - DRUG PRESCRIBING ERROR [None]
  - NEUROPATHY PERIPHERAL [None]
  - BLOOD PRESSURE DECREASED [None]
  - CONFUSIONAL STATE [None]
  - ATTENTION DEFICIT/HYPERACTIVITY DISORDER [None]
  - MYOCARDIAL INFARCTION [None]
  - SYNCOPE [None]
  - DRUG DOSE OMISSION [None]
  - INSOMNIA [None]
